FAERS Safety Report 5609625-9 (Version None)
Quarter: 2008Q1

REPORT INFORMATION
  Report Type: 
  Country: None (occurrence: None)
  Receive Date: 20080131
  Receipt Date: 20080122
  Transmission Date: 20080703
  Serious: Yes (Hospitalization)
  Sender: FDA-Public Use
  Company Number: US-PFIZER INC-2008000152

PATIENT
  Sex: Male
  Weight: 110.3 kg

DRUGS (4)
  1. SUTENT [Suspect]
     Indication: METASTATIC RENAL CELL CARCINOMA
     Route: 048
     Dates: start: 20070924, end: 20071228
  2. GLUCOPHAGE [Concomitant]
     Indication: DIABETES MELLITUS
     Route: 048
  3. AMARYL [Concomitant]
     Indication: DIABETES MELLITUS
     Route: 048
     Dates: start: 19960101
  4. ALTACE [Concomitant]
     Indication: HYPERTENSION
     Route: 048
     Dates: start: 20071015

REACTIONS (2)
  - ABDOMINAL PAIN UPPER [None]
  - CHOLECYSTITIS [None]
